FAERS Safety Report 7016805-7 (Version None)
Quarter: 2010Q3

REPORT INFORMATION
  Report Type: 
  Country: None (occurrence: None)
  Receive Date: 20100927
  Receipt Date: 20100914
  Transmission Date: 20110219
  Serious: Yes (Hospitalization)
  Sender: FDA-Public Use
  Company Number: AR-GENENTECH-306694

PATIENT
  Age: 65 Year
  Sex: Male

DRUGS (1)
  1. MABTHERA [Suspect]
     Indication: NON-HODGKIN'S LYMPHOMA
     Dosage: 375 MG/M2, UNK
     Route: 042
     Dates: start: 20100825, end: 20100825

REACTIONS (2)
  - MUCOSAL INFLAMMATION [None]
  - UPPER GASTROINTESTINAL HAEMORRHAGE [None]
